FAERS Safety Report 8516201-7 (Version None)
Quarter: 2012Q3

REPORT INFORMATION
  Report Type: 
  Country: None (occurrence: None)
  Receive Date: 20120717
  Receipt Date: 20120703
  Transmission Date: 20120928
  Serious: Yes (Hospitalization)
  Sender: FDA-Public Use
  Company Number: GB-ROCHE-1084144

PATIENT
  Sex: Female

DRUGS (4)
  1. TOCILIZUMAB [Suspect]
     Indication: PRODUCT USED FOR UNKNOWN INDICATION
     Dosage: INFUSION 1
  2. TOCILIZUMAB [Suspect]
     Dosage: INFUSION 3
  3. TOCILIZUMAB [Suspect]
     Dosage: INFUSION 4
  4. TOCILIZUMAB [Suspect]
     Dosage: INFUSION 2

REACTIONS (2)
  - VASCULITIS [None]
  - CELLULITIS [None]
